FAERS Safety Report 5730105-4 (Version None)
Quarter: 2008Q2

REPORT INFORMATION
  Report Type: 
  Country: None (occurrence: None)
  Receive Date: 20080507
  Receipt Date: 20080502
  Transmission Date: 20081010
  Serious: Yes (Hospitalization, Other)
  Sender: FDA-Public Use
  Company Number: PHNU2008DE01377

PATIENT
  Sex: Female

DRUGS (5)
  1. TRILEPTAL [Suspect]
     Indication: EPILEPSY
     Dosage: 1200 MG/D
     Route: 048
     Dates: start: 20080201, end: 20080320
  2. TRILEPTAL [Suspect]
     Dosage: 900 MG/D
     Route: 048
     Dates: start: 20080321
  3. SEROQUEL [Concomitant]
  4. LORAZEPAM [Concomitant]
  5. AKINETON [Concomitant]

REACTIONS (3)
  - HERPES ZOSTER [None]
  - PYREXIA [None]
  - RASH MACULAR [None]
